FAERS Safety Report 15489262 (Version 3)
Quarter: 2019Q2

REPORT INFORMATION
  Report Type: Spontaneous
  Country: US (occurrence: US)
  Receive Date: 20181011
  Receipt Date: 20190410
  Transmission Date: 20190711
  Serious: Yes (Hospitalization, Other)
  Sender: FDA-Public Use
  Company Number: US-AMNEAL PHARMACEUTICALS-2018AMN00510

PATIENT
  Age: 2 Year
  Sex: Male
  Weight: 16.55 kg

DRUGS (5)
  1. VIGABATRIN. [Suspect]
     Active Substance: VIGABATRIN
     Indication: EPILEPSY
     Dosage: 1250 MG, 2X/DAY, TITRATION DOSING
     Route: 048
  2. OXYGEN. [Concomitant]
     Active Substance: OXYGEN
     Indication: PRODUCT USED FOR UNKNOWN INDICATION
  3. VIGABATRIN. [Suspect]
     Active Substance: VIGABATRIN
     Dosage: 1000 MG (2 PACKS) 1500 MG (3 PACKS):DECREASED BY 1 PACKET PER DAY EACH WEEK
     Route: 048
  4. PEDIASURE [Concomitant]
     Active Substance: VITAMINS
     Indication: PRODUCT USED FOR UNKNOWN INDICATION
     Dosage: UNK
  5. VIGABATRIN. [Suspect]
     Active Substance: VIGABATRIN
     Indication: SEIZURE
     Dosage: 7.5 ML, 2X/DAY
     Route: 048

REACTIONS (8)
  - Pneumonia [Unknown]
  - Wheezing [Unknown]
  - Bruxism [Unknown]
  - Rash [Unknown]
  - Dyspnoea [Unknown]
  - Product administration interrupted [Unknown]
  - Seizure [Unknown]
  - Drug ineffective [Unknown]

NARRATIVE: CASE EVENT DATE: 201808
